FAERS Safety Report 5512503-7 (Version None)
Quarter: 2007Q4

REPORT INFORMATION
  Report Type: 
  Country: None (occurrence: None)
  Receive Date: 20071112
  Receipt Date: 20070524
  Transmission Date: 20080405
  Serious: No
  Sender: FDA-Public Use
  Company Number: A0652904A

PATIENT
  Age: 61 Year
  Sex: Female

DRUGS (4)
  1. AVANDAMET [Suspect]
     Route: 048
     Dates: start: 20060101, end: 20070522
  2. TIAZAC [Concomitant]
  3. CRESTOR [Concomitant]
  4. STARLIX [Concomitant]

REACTIONS (2)
  - HEART RATE INCREASED [None]
  - LEFT VENTRICULAR HYPERTROPHY [None]
